FAERS Safety Report 20063503 (Version 8)
Quarter: 2022Q2

REPORT INFORMATION
  Report Type: Spontaneous
  Country: JP (occurrence: JP)
  Receive Date: 20211112
  Receipt Date: 20220429
  Transmission Date: 20220721
  Serious: Yes (Hospitalization, Other)
  Sender: FDA-Public Use
  Company Number: JP-UNITED THERAPEUTICS-UNT-2021-022723

PATIENT
  Age: 5 Year
  Sex: Male
  Weight: 18.9 kg

DRUGS (12)
  1. UNITUXIN [Suspect]
     Active Substance: DINUTUXIMAB
     Indication: Neuroblastoma
     Dosage: UNK, CYCLICAL (CYCLE 1)
     Route: 041
     Dates: start: 20211025, end: 20211028
  2. UNITUXIN [Suspect]
     Active Substance: DINUTUXIMAB
     Dosage: UNK, CYCLICAL (CYCLE 2)
     Route: 041
     Dates: start: 20211129, end: 20211202
  3. UNITUXIN [Suspect]
     Active Substance: DINUTUXIMAB
     Dosage: UNK, CYCLICAL (CYCLE 3)
     Route: 041
     Dates: start: 20220111, end: 20220114
  4. UNITUXIN [Suspect]
     Active Substance: DINUTUXIMAB
     Dosage: UNK, CYCLICAL (CYCLE 4)
     Route: 041
     Dates: start: 20220214, end: 20220215
  5. UNITUXIN [Suspect]
     Active Substance: DINUTUXIMAB
     Dosage: UNK, CYCLICAL (CYCLE 4)
     Route: 041
     Dates: start: 20220217, end: 20220218
  6. UNITUXIN [Suspect]
     Active Substance: DINUTUXIMAB
     Dosage: UNK UNK, CYCLICAL
     Route: 041
     Dates: end: 20220322
  7. MORPHINE HYDROCHLORIDE [Suspect]
     Active Substance: MORPHINE HYDROCHLORIDE
     Indication: Product used for unknown indication
     Dosage: UNK
     Route: 041
  8. FUROSEMIDE [Suspect]
     Active Substance: FUROSEMIDE
     Indication: Weight increased
     Dosage: UNK
     Route: 065
     Dates: start: 20220112, end: 20220112
  9. ACETAMINOPHEN [Concomitant]
     Active Substance: ACETAMINOPHEN
     Indication: Product used for unknown indication
     Dosage: UNK
     Route: 065
  10. FILGRASTIM [Concomitant]
     Active Substance: FILGRASTIM
     Indication: Product used for unknown indication
     Dosage: UNK
     Route: 065
     Dates: start: 20211022
  11. TECELEUKIN [Concomitant]
     Active Substance: TECELEUKIN
     Indication: Product used for unknown indication
     Dosage: UNK
     Route: 065
     Dates: start: 20211122
  12. FILGRASTIM [Concomitant]
     Active Substance: FILGRASTIM
     Indication: Product used for unknown indication
     Dosage: UNK
     Route: 058
     Dates: start: 20220319

REACTIONS (29)
  - Capillary leak syndrome [Recovered/Resolved]
  - Capillary leak syndrome [Recovered/Resolved]
  - Capillary leak syndrome [Recovered/Resolved]
  - Myelosuppression [Recovered/Resolved]
  - Disease progression [Unknown]
  - Liver disorder [Recovering/Resolving]
  - Liver disorder [Recovering/Resolving]
  - Constipation [Recovered/Resolved]
  - Haemoglobin decreased [Unknown]
  - Pyrexia [Recovered/Resolved]
  - Pyrexia [Recovered/Resolved]
  - Pyrexia [Recovered/Resolved]
  - Pyrexia [Recovered/Resolved]
  - Oxygen saturation decreased [Recovered/Resolved]
  - Hypotension [Recovered/Resolved]
  - Infection [Unknown]
  - Anaemia [Unknown]
  - Platelet count decreased [Unknown]
  - Platelet count decreased [Not Recovered/Not Resolved]
  - Platelet count decreased [Unknown]
  - Alanine aminotransferase increased [Recovering/Resolving]
  - Aspartate aminotransferase increased [Recovering/Resolving]
  - Alanine aminotransferase increased [Recovering/Resolving]
  - Aspartate aminotransferase increased [Recovering/Resolving]
  - Weight increased [Recovered/Resolved]
  - C-reactive protein increased [Recovering/Resolving]
  - C-reactive protein increased [Recovering/Resolving]
  - C-reactive protein increased [Recovered/Resolved]
  - C-reactive protein increased [Recovering/Resolving]

NARRATIVE: CASE EVENT DATE: 20210101
